FAERS Safety Report 4905277-1 (Version None)
Quarter: 2006Q1

REPORT INFORMATION
  Report Type: 
  Country: None (occurrence: None)
  Receive Date: 20060208
  Receipt Date: 20051207
  Transmission Date: 20060701
  Serious: No
  Sender: FDA-Public Use
  Company Number: US-GLAXOSMITHKLINE-A0584999A

PATIENT
  Age: 36 Year
  Sex: Male

DRUGS (3)
  1. PAXIL [Suspect]
     Dosage: 25MG PER DAY
     Route: 048
     Dates: start: 19990101
  2. PAROXETINE HCL [Suspect]
     Dosage: 30MG TWICE PER DAY
     Route: 048
     Dates: start: 20051101
  3. KLONOPIN [Concomitant]

REACTIONS (2)
  - DRUG INEFFECTIVE [None]
  - LETHARGY [None]
